FAERS Safety Report 6714669-X (Version None)
Quarter: 2010Q2

REPORT INFORMATION
  Report Type: 
  Country: None (occurrence: None)
  Receive Date: 20100507
  Receipt Date: 20100427
  Transmission Date: 20101027
  Serious: No
  Sender: FDA-Public Use
  Company Number: US-BIOGENIDEC-2010BI009768

PATIENT
  Sex: Male

DRUGS (8)
  1. TYSABRI [Suspect]
     Indication: MULTIPLE SCLEROSIS
     Route: 042
     Dates: start: 20080101
  2. AVONEX [Concomitant]
     Indication: MULTIPLE SCLEROSIS
     Route: 030
     Dates: start: 20040531
  3. WELLBUTRIN XL [Concomitant]
  4. LYRICA [Concomitant]
  5. GABAPENTIN [Concomitant]
  6. FLAXSEED OIL [Concomitant]
  7. VITAMIN D [Concomitant]
  8. VITAMIN C [Concomitant]

REACTIONS (2)
  - ANXIETY [None]
  - APHASIA [None]
